FAERS Safety Report 25512576 (Version 1)
Quarter: 2025Q3

REPORT INFORMATION
  Report Type: Spontaneous
  Country: US (occurrence: US)
  Receive Date: 20250703
  Receipt Date: 20250703
  Transmission Date: 20251020
  Serious: No
  Sender: RADIUS PHARM
  Company Number: US-RADIUS HEALTH INC.-2024US005279

PATIENT
  Age: 56 Year
  Sex: Female

DRUGS (1)
  1. TYMLOS [Suspect]
     Active Substance: ABALOPARATIDE
     Indication: Senile osteoporosis
     Dosage: 80 MICROGRAM, QD
     Route: 058
     Dates: start: 202406

REACTIONS (9)
  - Thirst [Unknown]
  - Pollakiuria [Unknown]
  - Skin wrinkling [Unknown]
  - Skin indentation [Unknown]
  - Heart rate increased [Unknown]
  - Nausea [Unknown]
  - Dizziness [Unknown]
  - Insomnia [Unknown]
  - Palpitations [Recovering/Resolving]

NARRATIVE: CASE EVENT DATE: 20250312
